FAERS Safety Report 5676233-3 (Version None)
Quarter: 2008Q1

REPORT INFORMATION
  Report Type: 
  Country: None (occurrence: None)
  Receive Date: 20080321
  Receipt Date: 20080311
  Transmission Date: 20080703
  Serious: Yes (Hospitalization, Other)
  Sender: FDA-Public Use
  Company Number: US-ELI_LILLY_AND_COMPANY-US200803001331

PATIENT
  Sex: Male

DRUGS (26)
  1. CYMBALTA [Suspect]
     Indication: DEPRESSION
     Dosage: 30 MG, 2/D
     Dates: start: 20060101
  2. REMERON [Concomitant]
     Dosage: 45 MG, EACH EVENING
  3. ATIVAN [Concomitant]
     Dosage: 1 MG, 3/D
  4. TOPROL [Concomitant]
     Dosage: 50 MG, 2/D
  5. CARDIZEM [Concomitant]
     Dosage: 180 MG, 2/D
  6. COUMADIN [Concomitant]
     Dosage: 1 D/F, UNK
  7. FERROUS SULFATE TAB [Concomitant]
     Dosage: 325 MG, DAILY (1/D)
  8. MULTI-VITAMIN [Concomitant]
     Dosage: 1 D/F, DAILY (1/D)
  9. PREVACID [Concomitant]
     Dosage: 30 MG, DAILY (1/D)
  10. LEVOTHYROXINE SODIUM [Concomitant]
     Dosage: 137 UG, DAILY (1/D)
  11. VITAMIN B-12 [Concomitant]
     Dosage: 1000 MG, DAILY (1/D)
  12. GLEEVEC [Concomitant]
     Dosage: 400 MG, EACH EVENING
  13. SINGULAIR [Concomitant]
     Dosage: 10 MG, EACH EVENING
  14. FLOMAX [Concomitant]
     Dosage: 0.4 MG, EACH EVENING
  15. LORATADINE [Concomitant]
     Dosage: 10 MG, EACH EVENING
  16. DOCUSATE SODIUM [Concomitant]
     Dosage: 100 MG, 2/D
  17. GLUCOSAMINE/CHONDROITIN            /01625901/ [Concomitant]
     Dosage: 1 D/F, 3/D
  18. PULMICORT [Concomitant]
     Indication: DYSPNOEA
     Dosage: 2 D/F, AS NEEDED
     Route: 055
  19. PROVENTIL                               /USA/ [Concomitant]
     Indication: DYSPNOEA
     Dosage: 2 D/F, AS NEEDED
  20. ASTELIN [Concomitant]
     Indication: HYPERSENSITIVITY
     Dosage: 2 D/F, AS NEEDED
  21. PROCRIT [Concomitant]
     Dosage: 1 D/F, AS NEEDED
  22. PREDNISONE TAB [Concomitant]
     Indication: HYPERSENSITIVITY
     Dosage: 1 D/F, AS NEEDED
  23. TYLENOL                                 /SCH/ [Concomitant]
     Indication: PAIN
     Dosage: 2 D/F, AS NEEDED
  24. LORAZEPAM [Concomitant]
     Indication: ANXIETY
     Dosage: 1 MG, 3/D
  25. MAALOX [Concomitant]
     Indication: DYSPEPSIA
     Dosage: 2 D/F, AS NEEDED
  26. TRAMADOL HCL [Concomitant]
     Indication: PAIN
     Dosage: 50 MG, AS NEEDED

REACTIONS (20)
  - ARTHRALGIA [None]
  - ATRIAL FIBRILLATION [None]
  - CARDIAC PACEMAKER REVISION [None]
  - CATARACT OPERATION [None]
  - DELIRIUM [None]
  - DRUG WITHDRAWAL SYNDROME [None]
  - DYSPHAGIA [None]
  - DYSPNOEA [None]
  - EYE OPERATION [None]
  - GAIT DISTURBANCE [None]
  - GOUT [None]
  - HALLUCINATION, VISUAL [None]
  - INCOHERENT [None]
  - KNEE ARTHROPLASTY [None]
  - MEMORY IMPAIRMENT [None]
  - POLYPECTOMY [None]
  - SKIN NEOPLASM EXCISION [None]
  - SLEEP APNOEA SYNDROME [None]
  - SPINAL FRACTURE [None]
  - VISION BLURRED [None]
